FAERS Safety Report 8577009-X (Version None)
Quarter: 2012Q3

REPORT INFORMATION
  Report Type: 
  Country: None (occurrence: None)
  Receive Date: 20120807
  Receipt Date: 20120521
  Transmission Date: 20120928
  Serious: No
  Sender: FDA-Public Use
  Company Number: US-BAUSCH-2012BL003243

PATIENT
  Sex: Male

DRUGS (5)
  1. DORZOLAMIDE HCL AND TIMOLOL MALEATE [Suspect]
     Route: 047
     Dates: start: 20020101
  2. DORZOLAMIDE HCL AND TIMOLOL MALEATE [Suspect]
     Indication: OPEN ANGLE GLAUCOMA
     Route: 047
     Dates: start: 20020101
  3. SYSTANE ULTRA [Concomitant]
     Indication: DRY EYE
     Route: 047
  4. LOTEMAX [Concomitant]
     Indication: EYE INFECTION
     Route: 047
     Dates: start: 20110101, end: 20120501
  5. LUMIGAN [Concomitant]
     Indication: INTRAOCULAR PRESSURE TEST
     Route: 047
     Dates: start: 19970101

REACTIONS (3)
  - INTRAOCULAR PRESSURE INCREASED [None]
  - VISION BLURRED [None]
  - CONDITION AGGRAVATED [None]
